FAERS Safety Report 9146677 (Version 1)
Quarter: 2013Q1

REPORT INFORMATION
  Report Type: Spontaneous
  Country: US (occurrence: None)
  Receive Date: 20130222
  Receipt Date: 20130222
  Transmission Date: 20140127
  Serious: Yes (Death)
  Sender: FDA-Public Use
  Company Number: 2013-00393

PATIENT
  Age: 92 Year
  Sex: Female

DRUGS (3)
  1. LISINOPRIL (UNKNOWN) (LISINOPRIL) [Suspect]
     Indication: PRODUCT USED FOR UNKNOWN INDICATION
     Dosage: UNKNOWN  (UNKNOWN,  UNKNOWN), UNKNOWN?UNKNOWN  -
  2. ATENOLOL (UNKNOWN) [Suspect]
     Indication: PRODUCT USED FOR UNKNOWN INDICATION
     Dosage: UNKNOWN  (UNKNOWN,  UNKNOWN), UNKNOWN?UNKNOWN  -
  3. SULINDAC (UNKNOWN) [Suspect]
     Indication: PRODUCT USED FOR UNKNOWN INDICATION
     Dosage: UNKNOWN  (UNKNOWN,  UNKNOWN), UNKNOWN?UNKNOWN  -

REACTIONS (1)
  - Adverse drug reaction [None]
